FAERS Safety Report 9303419 (Version 1)
Quarter: 2013Q2

REPORT INFORMATION
  Report Type: Spontaneous
  Country: US (occurrence: None)
  Receive Date: 20130521
  Receipt Date: 20130521
  Transmission Date: 20140414
  Serious: No
  Sender: FDA-Public Use
  Company Number: None

PATIENT
  Age: 45 Year
  Sex: Female
  Weight: 106.14 kg

DRUGS (3)
  1. KETOROLAC [Suspect]
     Indication: BACK PAIN
     Dates: start: 20130506, end: 20130507
  2. KETOROLAC [Suspect]
     Indication: NERVE COMPRESSION
     Dates: start: 20130506, end: 20130507
  3. KETOROLAC [Suspect]
     Indication: INTERVERTEBRAL DISC DISORDER
     Dates: start: 20130506, end: 20130507

REACTIONS (8)
  - Fatigue [None]
  - Confusional state [None]
  - Abdominal discomfort [None]
  - Dizziness [None]
  - Abnormal dreams [None]
  - Tremor [None]
  - Crying [None]
  - Nervousness [None]
